FAERS Safety Report 5813853-7 (Version None)
Quarter: 2008Q3

REPORT INFORMATION
  Report Type: 
  Country: None (occurrence: None)
  Receive Date: 20080717
  Receipt Date: 20080715
  Transmission Date: 20090109
  Serious: Yes (Hospitalization)
  Sender: FDA-Public Use
  Company Number: FR-WYE-G01664708

PATIENT
  Sex: Female

DRUGS (3)
  1. ADVIL [Suspect]
     Indication: PYREXIA
     Dosage: ONE SINGLE DOSE
     Route: 048
     Dates: start: 20080606, end: 20080606
  2. ADVIL [Suspect]
     Indication: CHILLS
  3. CELESTENE [Suspect]
     Indication: HAND-FOOT-AND-MOUTH DISEASE
     Dosage: UNKNOWN
     Route: 048
     Dates: start: 20080603, end: 20080605

REACTIONS (1)
  - ARTHRITIS BACTERIAL [None]
